FAERS Safety Report 21402600 (Version 5)
Quarter: 2024Q1

REPORT INFORMATION
  Report Type: Spontaneous
  Country: US (occurrence: US)
  Receive Date: 20221003
  Receipt Date: 20240207
  Transmission Date: 20240410
  Serious: Yes (Other)
  Sender: FDA-Public Use
  Company Number: US-UPSHER-SMITH LABORATORIES, LLC-2022USL00765

PATIENT
  Age: 24 Year
  Sex: Female

DRUGS (3)
  1. ISOTRETINOIN [Suspect]
     Active Substance: ISOTRETINOIN
     Indication: Acne
     Dosage: 30 MG, 1X/DAY
     Dates: start: 20220823, end: 20220831
  2. MYORISAN [Suspect]
     Active Substance: ISOTRETINOIN
     Dosage: UNK
     Dates: start: 20220720, end: 20220822
  3. DROSPIRENONE [Concomitant]
     Active Substance: DROSPIRENONE
     Dosage: UNK

REACTIONS (9)
  - Exposure during pregnancy [Not Recovered/Not Resolved]
  - Haemorrhage in pregnancy [Recovered/Resolved]
  - Mean platelet volume increased [Unknown]
  - Very low density lipoprotein increased [Unknown]
  - White blood cell count increased [Unknown]
  - Blood triglycerides increased [Unknown]
  - High density lipoprotein decreased [Unknown]
  - Treatment noncompliance [Recovered/Resolved]
  - Inappropriate schedule of product administration [Recovered/Resolved]

NARRATIVE: CASE EVENT DATE: 20220720
